FAERS Safety Report 13320088 (Version 1)
Quarter: 2017Q1

REPORT INFORMATION
  Report Type: Spontaneous
  Country: CA (occurrence: CA)
  Receive Date: 20170309
  Receipt Date: 20170309
  Transmission Date: 20170428
  Serious: Yes (Other)
  Sender: FDA-Public Use
  Company Number: CA-TEVA-747148ACC

PATIENT
  Age: 34 Year
  Sex: Female
  Weight: 57.2 kg

DRUGS (1)
  1. TOPIRAMATE. [Suspect]
     Active Substance: TOPIRAMATE
     Indication: MIGRAINE
     Dosage: 50 MILLIGRAM DAILY;
     Route: 048

REACTIONS (6)
  - Insomnia [Unknown]
  - Product physical issue [Unknown]
  - Palpitations [Unknown]
  - Migraine [Unknown]
  - Night sweats [Unknown]
  - Condition aggravated [Unknown]
